FAERS Safety Report 7880205-8 (Version None)
Quarter: 2011Q4

REPORT INFORMATION
  Report Type: 
  Country: None (occurrence: None)
  Receive Date: 20111101
  Receipt Date: 20111026
  Transmission Date: 20120403
  Serious: Yes (Other)
  Sender: FDA-Public Use
  Company Number: US-PFIZER INC-2011262914

PATIENT

DRUGS (1)
  1. GABAPENTIN [Suspect]
     Dosage: 600 MG, 3X/DAY

REACTIONS (2)
  - URTICARIA [None]
  - ANAPHYLACTIC REACTION [None]
